FAERS Safety Report 7402035-3 (Version None)
Quarter: 2011Q2

REPORT INFORMATION
  Report Type: 
  Country: None (occurrence: None)
  Receive Date: 20110408
  Receipt Date: 20110328
  Transmission Date: 20111010
  Serious: Yes (Other)
  Sender: FDA-Public Use
  Company Number: MY-RANBAXY-2011RR-43408

PATIENT
  Age: 58 Year
  Sex: Female

DRUGS (16)
  1. BHOONA [Suspect]
     Dosage: UNK
     Route: 048
     Dates: start: 20081001
  2. CHOORNAM [Suspect]
     Dosage: UNK
     Route: 048
     Dates: start: 20081001
  3. KASHAYAM [Suspect]
     Dosage: UNK
     Route: 048
     Dates: start: 20081001
  4. CHERIYA RASNADI KASHAYAM [Suspect]
     Dosage: UNK
     Route: 048
     Dates: start: 20081001
  5. MIXED THAILAM [Suspect]
     Dosage: UNK
     Route: 048
     Dates: start: 20081001
  6. SELEGILINE [Suspect]
     Indication: PARKINSON'S DISEASE
     Dosage: 5 MG, UNK
  7. SIVAGULIKA [Suspect]
     Dosage: UNK
     Route: 048
     Dates: start: 20081001
  8. LEGYAM [Suspect]
     Dosage: UNK
     Route: 048
     Dates: start: 20081001
  9. RASA THAILAM [Suspect]
     Dosage: UNK
     Route: 048
     Dates: start: 20081001
  10. LEVODOPA/BENSERAZIDE [Suspect]
     Indication: PARKINSON'S DISEASE
     Dosage: 100/25 MG
  11. TRIHEXYPHENIDYL [Suspect]
     Indication: PARKINSON'S DISEASE
     Dosage: 1 MG, TID
  12. ARISHTAM [Suspect]
     Dosage: UNK
     Route: 048
     Dates: start: 20081001
  13. GHEE [Suspect]
     Dosage: UNK
     Route: 048
     Dates: start: 20081001
  14. LEVODOPA/CARBIDOPA/ENTACAPONE [Suspect]
     Indication: PARKINSON'S DISEASE
     Dosage: 150/37.5/200 MG
  15. AVARTHANAM [Suspect]
     Dosage: UNK
     Route: 048
     Dates: start: 20081001
  16. DASAMOOLAKATUTHRAYAM [Suspect]
     Dosage: UNK
     Route: 048
     Dates: start: 20081001

REACTIONS (3)
  - HAND DEFORMITY [None]
  - DRUG WITHDRAWAL SYNDROME [None]
  - PAIN IN EXTREMITY [None]
